FAERS Safety Report 8184221 (Version 2)
Quarter: 2012Q4

REPORT INFORMATION
  Report Type: 
  Country: US (occurrence: US)
  Receive Date: 20111017
  Receipt Date: 20121018
  Transmission Date: 20130627
  Serious: Yes (Death, Hospitalization, Other)
  Sender: FDA-Public Use
  Company Number: US-BAYER-2011-095613

PATIENT
  Age: 68 Year
  Sex: Male
  Weight: 77 kg

DRUGS (4)
  1. BAYER ASPIRIN REGIMEN ADULT LOW STRENGTH [Suspect]
     Indication: PRODUCT USED FOR UNKNOWN INDICATION
     Dosage: 1 DF, QD
     Route: 048
     Dates: start: 201104, end: 20110615
  2. ANTIHYPERTENSIVES [Concomitant]
     Dosage: 1 DF, QD
     Dates: start: 1996
  3. ATENOLOL [Concomitant]
     Dosage: 1 DF, QD
     Route: 048
     Dates: start: 1996
  4. HYTRIN [Concomitant]
     Dosage: 1 DF, QD
     Route: 048
     Dates: start: 20110601

REACTIONS (3)
  - Gastric haemorrhage [Recovered/Resolved]
  - Colon cancer [Unknown]
  - Death [Fatal]
